FAERS Safety Report 18323739 (Version 1)
Quarter: 2020Q3

REPORT INFORMATION
  Report Type: Spontaneous
  Country: US (occurrence: US)
  Receive Date: 20200929
  Receipt Date: 20200929
  Transmission Date: 20201103
  Serious: Yes (Disabling, Other)
  Sender: FDA-Public Use
  Company Number: US-BTG-202000061

PATIENT
  Age: 61 Year
  Sex: Female
  Weight: 62.6 kg

DRUGS (1)
  1. VARITHENA [Suspect]
     Active Substance: POLIDOCANOL
     Indication: VEIN DISORDER
     Dosage: UNKNOWN
     Route: 065

REACTIONS (14)
  - Road traffic accident [Unknown]
  - Contusion [Unknown]
  - Peripheral swelling [Unknown]
  - Thrombosis [Unknown]
  - Induration [Unknown]
  - Bedridden [Unknown]
  - Dizziness [Unknown]
  - Depression [Unknown]
  - Hypoaesthesia [Unknown]
  - Pain in extremity [Unknown]
  - Visual impairment [Unknown]
  - Headache [Unknown]
  - Gout [Unknown]
  - Pruritus [Unknown]

NARRATIVE: CASE EVENT DATE: 20190304
